FAERS Safety Report 20650192 (Version 3)
Quarter: 2022Q4

REPORT INFORMATION
  Report Type: Spontaneous
  Country: US (occurrence: US)
  Receive Date: 20220329
  Receipt Date: 20221216
  Transmission Date: 20230113
  Serious: No
  Sender: FDA-Public Use
  Company Number: US-AVEO ONCOLOGY-2022-AVEO-US000001

PATIENT

DRUGS (14)
  1. FOTIVDA [Suspect]
     Active Substance: TIVOZANIB HYDROCHLORIDE
     Indication: Renal cell carcinoma
     Dosage: 1.34 MG, DAILY 21 DAYS ON, 7 DAYS OFF
     Route: 048
     Dates: start: 20211217, end: 20211228
  2. FOTIVDA [Suspect]
     Active Substance: TIVOZANIB HYDROCHLORIDE
     Dosage: 0.89 DAILY FOR 21 DAYS THEN 7 DAYS OFF.
     Route: 048
     Dates: start: 2022, end: 20220928
  3. ATIVAN [Concomitant]
     Active Substance: LORAZEPAM
  4. COZAAR [Concomitant]
     Active Substance: LOSARTAN POTASSIUM
  5. CREON [Concomitant]
     Active Substance: PANCRELIPASE AMYLASE\PANCRELIPASE LIPASE\PANCRELIPASE PROTEASE
  6. FLONASE ALLERGY RELIEF [Concomitant]
     Active Substance: FLUTICASONE PROPIONATE
  7. LEVOTHYROXINE [Concomitant]
     Active Substance: LEVOTHYROXINE
  8. LOPERAMIDE [Concomitant]
     Active Substance: LOPERAMIDE
  9. OXYCODONE [Concomitant]
     Active Substance: OXYCODONE
  10. PARICALCITOL [Concomitant]
     Active Substance: PARICALCITOL
  11. PROLIA [Concomitant]
     Active Substance: DENOSUMAB
  12. SYSTANE COMPLETE [Concomitant]
     Active Substance: PROPYLENE GLYCOL
  13. ZOFRAN [Concomitant]
     Active Substance: ONDANSETRON HYDROCHLORIDE
  14. ZYRTEC [Concomitant]
     Active Substance: CETIRIZINE HYDROCHLORIDE

REACTIONS (2)
  - Myalgia [Recovering/Resolving]
  - Pain [Recovering/Resolving]

NARRATIVE: CASE EVENT DATE: 20211227
